APPROVED DRUG PRODUCT: TYLENOL
Active Ingredient: ACETAMINOPHEN
Strength: 120MG
Dosage Form/Route: SUPPOSITORY;RECTAL
Application: N017756 | Product #002
Applicant: JOHNSON AND JOHNSON CONSUMER INC MCNEIL CONSUMER HEALTHCARE DIV
Approved: Approved Prior to Jan 1, 1982 | RLD: No | RS: No | Type: DISCN